FAERS Safety Report 20643040 (Version 1)
Quarter: 2022Q1

REPORT INFORMATION
  Report Type: Spontaneous
  Country: US (occurrence: US)
  Receive Date: 20220328
  Receipt Date: 20220328
  Transmission Date: 20220423
  Serious: No
  Sender: FDA-Public Use
  Company Number: US-NEBO-PC008192

PATIENT
  Age: 58 Year
  Sex: Female

DRUGS (1)
  1. MONOFERRIC [Suspect]
     Active Substance: FERRIC DERISOMALTOSE
     Indication: Iron deficiency anaemia
     Route: 065
     Dates: start: 20220303

REACTIONS (2)
  - Abdominal pain [Recovered/Resolved]
  - Skin discolouration [Recovering/Resolving]

NARRATIVE: CASE EVENT DATE: 20220303
